FAERS Safety Report 7457361-9 (Version None)
Quarter: 2011Q2

REPORT INFORMATION
  Report Type: 
  Country: None (occurrence: None)
  Receive Date: 20110504
  Receipt Date: 20110419
  Transmission Date: 20111010
  Serious: No
  Sender: FDA-Public Use
  Company Number: US-B.I. PHARMACEUTICALS,INC./RIDGEFIELD-2011-BP-06593BP

PATIENT
  Sex: Female

DRUGS (4)
  1. ATROVENT HFA [Suspect]
     Indication: UPPER-AIRWAY COUGH SYNDROME
  2. ATROVENT HFA [Suspect]
     Indication: BRONCHOSPASM
     Dosage: 136 MCG
     Route: 055
     Dates: start: 20110218, end: 20110218
  3. ATROVENT HFA [Suspect]
     Indication: ASTHMA
  4. ATROVENT HFA [Suspect]
     Indication: SINUS DISORDER

REACTIONS (5)
  - INFLAMMATION [None]
  - DYSPNOEA [None]
  - CHEST DISCOMFORT [None]
  - PHARYNGEAL ERYTHEMA [None]
  - OROPHARYNGEAL PAIN [None]
